FAERS Safety Report 13670530 (Version 2)
Quarter: 2021Q1

REPORT INFORMATION
  Report Type: Spontaneous
  Country: GB (occurrence: GB)
  Receive Date: 20170620
  Receipt Date: 20210114
  Transmission Date: 20210419
  Serious: Yes (Hospitalization, Other)
  Sender: FDA-Public Use
  Company Number: GB-MYLANLABS-2017M1036459

PATIENT
  Age: 37 Year
  Sex: Female

DRUGS (13)
  1. ONDANSETRON [Interacting]
     Active Substance: ONDANSETRON
     Indication: PROPHYLAXIS OF NAUSEA AND VOMITING
     Dosage: 8 MILLIGRAM, QD (DOSAGE FORM: UNSPECIFIED)
     Route: 042
     Dates: start: 20170530, end: 20170530
  2. TIBOLONE [Concomitant]
     Active Substance: TIBOLONE
     Indication: PRODUCT USED FOR UNKNOWN INDICATION
     Dosage: 2.5 MILLIGRAM, QD (DOSAGE FORM: UNSPECIFIED)
     Route: 065
  3. MORPHINE [Concomitant]
     Active Substance: MORPHINE
     Indication: PRODUCT USED FOR UNKNOWN INDICATION
     Dosage: 15 MG, UNK (DOSAGE FORM: UNSPECIFIED, POST OPERATIVELY)
     Route: 042
  4. PARECOXIB [Concomitant]
     Active Substance: PARECOXIB
     Indication: PRODUCT USED FOR UNKNOWN INDICATION
     Dosage: 40 MG, UNK (DOSAGE FORM: UNSPECIFIED)
     Route: 042
  5. PARACETAMOL [Concomitant]
     Active Substance: ACETAMINOPHEN
     Indication: PRODUCT USED FOR UNKNOWN INDICATION
     Dosage: 1 G, UNK (DOSAGE FORM: UNSPECIFIED)
     Route: 065
  6. DEXAMETHASONE. [Concomitant]
     Active Substance: DEXAMETHASONE
     Indication: PRODUCT USED FOR UNKNOWN INDICATION
     Dosage: 3.6 MG, UNK (DOSAGE FORM: UNSPECIFIED)
     Route: 042
  7. TRAMADOL. [Suspect]
     Active Substance: TRAMADOL
     Indication: PERIOPERATIVE ANALGESIA
     Dosage: 150 MILLIGRAM, QD (DOSAGE FORM: UNSPECIFIED)
     Route: 042
     Dates: start: 20170530, end: 20170530
  8. PRUCALOPRIDE [Interacting]
     Active Substance: PRUCALOPRIDE
     Indication: CONSTIPATION
     Dosage: 2 MG, QD
     Route: 048
  9. ATRACURIUM [Concomitant]
     Active Substance: ATRACURIUM
     Indication: PRODUCT USED FOR UNKNOWN INDICATION
     Dosage: 30 MG, UNK (DOSAGE FORM: UNSPECIFIED)
     Route: 042
  10. PROPOFOL. [Concomitant]
     Active Substance: PROPOFOL
     Indication: PRODUCT USED FOR UNKNOWN INDICATION
     Dosage: UNK
     Route: 042
  11. GABAPENTIN. [Concomitant]
     Active Substance: GABAPENTIN
     Indication: PRODUCT USED FOR UNKNOWN INDICATION
     Dosage: 900 MG, TID
  12. REMIFENTANIL [Concomitant]
     Active Substance: REMIFENTANIL
     Indication: PRODUCT USED FOR UNKNOWN INDICATION
     Dosage: UNK
     Route: 042
  13. RESOLOR [Interacting]
     Active Substance: PRUCALOPRIDE SUCCINATE
     Indication: CONSTIPATION
     Dosage: 2 MILLIGRAM, QD
     Route: 048

REACTIONS (8)
  - Vomiting [Unknown]
  - Somnolence [Unknown]
  - Renal impairment [Unknown]
  - Myoclonus [Unknown]
  - Nausea [Unknown]
  - Drug interaction [Unknown]
  - Serotonin syndrome [Recovering/Resolving]
  - Hyperreflexia [Unknown]

NARRATIVE: CASE EVENT DATE: 20170530
